FAERS Safety Report 8792248 (Version 2)
Quarter: 2014Q3

REPORT INFORMATION
  Report Type: Spontaneous
  Country: CH (occurrence: CH)
  Receive Date: 20120918
  Receipt Date: 20140807
  Transmission Date: 20150326
  Serious: Yes (Hospitalization, Other)
  Sender: FDA-Public Use
  Company Number: CH-RANBAXY-2012R1-59935

PATIENT
  Age: 16 Year
  Sex: Male

DRUGS (1)
  1. ISOTRETINOIN [Suspect]
     Active Substance: ISOTRETINOIN
     Indication: HIDRADENITIS
     Dosage: 40 MG, DAILY
     Route: 065

REACTIONS (4)
  - Haematuria [Recovering/Resolving]
  - Arthritis [Recovering/Resolving]
  - Henoch-Schonlein purpura [Recovering/Resolving]
  - Occult blood positive [Recovering/Resolving]
